FAERS Safety Report 25599360 (Version 4)
Quarter: 2025Q4

REPORT INFORMATION
  Report Type: Report from Study
  Country: CA (occurrence: CA)
  Receive Date: 20250724
  Receipt Date: 20251218
  Transmission Date: 20260117
  Serious: Yes (Hospitalization, Other)
  Sender: CELLTRION
  Company Number: CA-CELLTRION INC.-2025CA024379

PATIENT

DRUGS (3)
  1. USTEKINUMAB [Suspect]
     Active Substance: USTEKINUMAB
     Indication: Crohn^s disease
     Dosage: 90 MG EVERY 4 WEEKS
     Route: 058
     Dates: start: 20250127
  2. USTEKINUMAB [Suspect]
     Active Substance: USTEKINUMAB
     Indication: Colitis ulcerative
     Dosage: 90 MG EVERY 4 WEEKS
     Route: 058
     Dates: start: 20250225
  3. USTEKINUMAB [Suspect]
     Active Substance: USTEKINUMAB
     Dosage: 90 MG EVERY 4 WEEKS
     Route: 058
     Dates: start: 20250325

REACTIONS (9)
  - Brain fog [Unknown]
  - Dehydration [Unknown]
  - Food poisoning [Unknown]
  - Cystitis [Recovered/Resolved]
  - Lyme disease [Unknown]
  - Diarrhoea [Unknown]
  - Drug effect less than expected [Unknown]
  - Intentional product use issue [Unknown]
  - Intentional product use issue [Unknown]

NARRATIVE: CASE EVENT DATE: 20250704
